FAERS Safety Report 19205723 (Version 1)
Quarter: 2021Q2

REPORT INFORMATION
  Report Type: Spontaneous
  Country: US (occurrence: US)
  Receive Date: 20210503
  Receipt Date: 20210503
  Transmission Date: 20210717
  Serious: No
  Sender: FDA-Public Use
  Company Number: US-FARMAPROD-202102-0265

PATIENT
  Sex: Female
  Weight: 54.57 kg

DRUGS (12)
  1. GRAPE SEED EXTRACT [Concomitant]
     Active Substance: DIETARY SUPPLEMENT\GRAPE SEED EXTRACT
  2. XANAX [Concomitant]
     Active Substance: ALPRAZOLAM
  3. LEVOTHYROXINE SODIUM. [Concomitant]
     Active Substance: LEVOTHYROXINE SODIUM
  4. TOBRADEX [Concomitant]
     Active Substance: DEXAMETHASONE\TOBRAMYCIN
     Dosage: 0.3 %?0.1%
  5. CALCIUM/VITAMINE D3 [Concomitant]
     Dosage: 600?500 MG EXTENDED RELEASE TABLET
  6. MULTIVITAMIN WITH FLUORIDE [Concomitant]
     Active Substance: .ALPHA.-TOCOPHEROL\.ALPHA.-TOCOPHEROL ACETATE\.ALPHA.-TOCOPHEROL ACETATE, DL-\ASCORBIC ACID\CHOLECALCIFEROL\COBALAMIN\CYANOCOBALAMIN\FLUORIDE ION\FOLIC ACID\NIACIN\NIACINAMIDE\PYRIDOXINE\PYRIDOXINE HYDROCHLORIDE\RIBOFLAVIN\SODIUM ASCORBATE\SODIUM FLUORIDE\THIAMINE\THIAMINE MONONITRATE\VITAMIN A\VITA
  7. SPIRONOLACTONE. [Concomitant]
     Active Substance: SPIRONOLACTONE
  8. OXERVATE [Suspect]
     Active Substance: CENEGERMIN-BKBJ
     Indication: NEUROTROPHIC KERATOPATHY
     Route: 047
     Dates: start: 20210126
  9. VITAMINE C [Concomitant]
     Active Substance: ASCORBIC ACID
  10. ROBAXIN [Concomitant]
     Active Substance: METHOCARBAMOL
  11. ABILIFY [Concomitant]
     Active Substance: ARIPIPRAZOLE
  12. POTASSIUM CHLORIDE. [Concomitant]
     Active Substance: POTASSIUM CHLORIDE
     Dosage: EXTENDED RELEASE TABLET

REACTIONS (2)
  - Therapy interrupted [Unknown]
  - Eye discharge [Unknown]
